FAERS Safety Report 7154383-2 (Version None)
Quarter: 2010Q4

REPORT INFORMATION
  Report Type: 
  Country: None (occurrence: None)
  Receive Date: 20101213
  Receipt Date: 20101130
  Transmission Date: 20110411
  Serious: Yes (Disabling)
  Sender: FDA-Public Use
  Company Number: BE-ELI_LILLY_AND_COMPANY-BE201011004793

PATIENT
  Sex: Female
  Weight: 100 kg

DRUGS (2)
  1. CYMBALTA [Suspect]
     Indication: DEPRESSION
     Dosage: UNK, DAILY (1/D)
     Route: 048
     Dates: start: 20100602
  2. ZYPREXA [Concomitant]
     Indication: PSYCHOTIC DISORDER
     Dosage: 7.5 MG, DAILY (1/D)
     Route: 048
     Dates: start: 20070101

REACTIONS (1)
  - SLEEP APNOEA SYNDROME [None]
